FAERS Safety Report 8946988 (Version 4)
Quarter: 2013Q1

REPORT INFORMATION
  Report Type: Spontaneous
  Country: US (occurrence: US)
  Receive Date: 20121205
  Receipt Date: 20130114
  Transmission Date: 20140127
  Serious: Yes (Disabling)
  Sender: FDA-Public Use
  Company Number: US-PFIZER INC-2012305743

PATIENT
  Age: 60 Year
  Sex: Female
  Weight: 133.78 kg

DRUGS (6)
  1. NEURONTIN [Suspect]
     Indication: PAIN
     Dosage: 300 MG, 2X/DAY
  2. NORVASC [Suspect]
     Indication: HYPERTENSION
     Dosage: 5 MG, 1X/DAY
  3. TRICOR [Concomitant]
     Dosage: UNK
  4. SYNTHROID [Concomitant]
     Indication: THYROID DISORDER
     Dosage: UNK
  5. PROZAC [Concomitant]
     Dosage: UNK
  6. VYTORIN [Concomitant]
     Dosage: UNK

REACTIONS (3)
  - Cardiac disorder [Not Recovered/Not Resolved]
  - Burning sensation [Not Recovered/Not Resolved]
  - Diabetes mellitus [Not Recovered/Not Resolved]
